FAERS Safety Report 6296194-6 (Version None)
Quarter: 2009Q3

REPORT INFORMATION
  Report Type: 
  Country: None (occurrence: None)
  Receive Date: 20090804
  Receipt Date: 20090730
  Transmission Date: 20100115
  Serious: Yes (Other)
  Sender: FDA-Public Use
  Company Number: US-JNJFOC-20061006161

PATIENT
  Sex: Male

DRUGS (7)
  1. RISPERDAL [Suspect]
  2. RISPERDAL [Suspect]
     Indication: SCHIZOAFFECTIVE DISORDER
  3. SEROQUEL [Suspect]
     Indication: DEPRESSION
  4. PAXIL [Concomitant]
  5. RITALIN [Concomitant]
  6. WELLBUTRIN [Concomitant]
  7. REMERON [Concomitant]

REACTIONS (15)
  - AMNESIA [None]
  - DELUSION [None]
  - DIZZINESS [None]
  - EXTRAPYRAMIDAL DISORDER [None]
  - FALL [None]
  - GENERAL PHYSICAL HEALTH DETERIORATION [None]
  - GLYCOSYLATED HAEMOGLOBIN INCREASED [None]
  - HYPERLIPIDAEMIA [None]
  - MUSCLE TWITCHING [None]
  - PARAESTHESIA [None]
  - PARKINSONISM [None]
  - SEDATION [None]
  - SPINAL COLUMN STENOSIS [None]
  - TYPE 2 DIABETES MELLITUS [None]
  - WEIGHT INCREASED [None]
